FAERS Safety Report 9898893 (Version 2)
Quarter: 2014Q1

REPORT INFORMATION
  Report Type: Spontaneous
  Country: US (occurrence: US)
  Receive Date: 20140214
  Receipt Date: 20140214
  Transmission Date: 20141002
  Serious: Yes (Hospitalization)
  Sender: FDA-Public Use
  Company Number: US-GLAXOSMITHKLINE-A0802629A

PATIENT
  Age: 57 Year
  Sex: Male
  Weight: 111.4 kg

DRUGS (1)
  1. AVANDIA [Suspect]
     Indication: TYPE 2 DIABETES MELLITUS
     Dosage: 8MG PER DAY
     Route: 048
     Dates: start: 20000530, end: 200708

REACTIONS (3)
  - Cardiac disorder [Not Recovered/Not Resolved]
  - Cardiovascular disorder [Unknown]
  - Cerebrovascular accident [Unknown]
